FAERS Safety Report 5661379-6 (Version None)
Quarter: 2008Q1

REPORT INFORMATION
  Report Type: 
  Country: None (occurrence: None)
  Receive Date: 20080311
  Receipt Date: 20080228
  Transmission Date: 20080703
  Serious: Yes (Death)
  Sender: FDA-Public Use
  Company Number: ES-PFIZER INC-2008018743

PATIENT
  Age: 69 Year
  Sex: Female

DRUGS (5)
  1. NEURONTIN [Suspect]
     Indication: PAIN
     Route: 048
     Dates: start: 20071001, end: 20071231
  2. ORFIDAL [Suspect]
     Indication: INSOMNIA
     Route: 048
     Dates: start: 20071001, end: 20071231
  3. FRENADOL [Suspect]
     Indication: INFLUENZA LIKE ILLNESS
     Route: 048
     Dates: start: 20071226, end: 20071231
  4. ENALAPRIL MALEATE [Concomitant]
     Indication: HYPERTENSION
     Route: 048
     Dates: start: 19960101, end: 20071231
  5. ACETAMINOPHEN [Concomitant]
     Indication: PAIN
     Route: 048
     Dates: start: 20070601, end: 20071231

REACTIONS (2)
  - DISORIENTATION [None]
  - HYPONATRAEMIA [None]
